FAERS Safety Report 5265907-4 (Version None)
Quarter: 2007Q1

REPORT INFORMATION
  Report Type: 
  Country: None (occurrence: None)
  Receive Date: 20070315
  Receipt Date: 20070302
  Transmission Date: 20070707
  Serious: Yes (Other)
  Sender: FDA-Public Use
  Company Number: PHBS2007BR04016

PATIENT
  Age: 60 Year
  Sex: Female
  Weight: 88 kg

DRUGS (5)
  1. FORADIL [Suspect]
     Indication: DYSPNOEA
     Dosage: 12 UG, QD
     Dates: start: 20040101
  2. GEMFIBROZIL [Concomitant]
     Indication: HYPERTRIGLYCERIDAEMIA
     Dosage: UNKNOWN
     Route: 048
  3. PURAN T4 [Concomitant]
     Indication: HYPOTHYROIDISM
     Dosage: UNKNOWN
     Route: 048
  4. LOSARTAN POTASSIUM [Concomitant]
     Indication: BLOOD PRESSURE INCREASED
     Dosage: 1 TABLET
     Route: 048
     Dates: start: 20070302, end: 20070302
  5. LOSARTAN POTASSIUM [Concomitant]
     Dosage: 1 TABLET DAILY, TIME PERIOD UNLCLEAR
     Route: 048

REACTIONS (5)
  - BLOOD PRESSURE INCREASED [None]
  - EXOSTOSIS [None]
  - MALAISE [None]
  - OEDEMA PERIPHERAL [None]
  - TACHYCARDIA [None]
